FAERS Safety Report 12808693 (Version 1)
Quarter: 2016Q4

REPORT INFORMATION
  Report Type: Spontaneous
  Country: US (occurrence: US)
  Receive Date: 20161004
  Receipt Date: 20161004
  Transmission Date: 20170207
  Serious: No
  Sender: FDA-Public Use
  Company Number: US-ASTRAZENECA-2016SE94659

PATIENT
  Age: 774 Month
  Sex: Male
  Weight: 72.6 kg

DRUGS (4)
  1. OPANA [Concomitant]
     Active Substance: OXYMORPHONE HYDROCHLORIDE
     Indication: PAIN
  2. MOVANTIK [Suspect]
     Active Substance: NALOXEGOL OXALATE
     Indication: CONSTIPATION
     Route: 048
     Dates: start: 20150721
  3. METHADONE [Concomitant]
     Active Substance: METHADONE HYDROCHLORIDE
     Indication: PAIN
  4. FENTANYL. [Concomitant]
     Active Substance: FENTANYL

REACTIONS (7)
  - Intentional product misuse [Unknown]
  - Intentional product misuse [Unknown]
  - Constipation [Unknown]
  - Gastrointestinal hypermotility [Unknown]
  - Vomiting [Unknown]
  - Withdrawal syndrome [Unknown]
  - Abdominal pain upper [Unknown]

NARRATIVE: CASE EVENT DATE: 201608
